FAERS Safety Report 9018150 (Version 1)
Quarter: 2013Q1

REPORT INFORMATION
  Report Type: Spontaneous
  Country: JP (occurrence: JP)
  Receive Date: 20130117
  Receipt Date: 20130117
  Transmission Date: 20140127
  Serious: Yes (Hospitalization)
  Sender: FDA-Public Use
  Company Number: JP-AMGEN-JPNSP2011048181

PATIENT
  Age: 32 Year
  Sex: Female
  Weight: 39 kg

DRUGS (8)
  1. ENBREL [Suspect]
     Indication: RHEUMATOID ARTHRITIS
     Dosage: 25 MG, 2 TIMES/WK
     Route: 058
     Dates: start: 20080514
  2. ENBREL [Interacting]
     Dosage: 25 MG, 2 TIMES/WK
     Route: 058
     Dates: start: 20080514, end: 20100923
  3. ENBREL [Interacting]
     Dosage: 25 MG, 2 TIMES/WK
     Route: 058
     Dates: start: 20101020, end: 20101228
  4. DUROTEP [Interacting]
     Indication: ARTHRALGIA
     Dosage: MT PATCH
     Route: 062
     Dates: start: 20101014, end: 20101120
  5. PREDNISOLONE [Concomitant]
     Dosage: 4 MG, QD
     Route: 048
  6. METOLATE [Concomitant]
     Dosage: 10 MG, WEEKLY
     Route: 048
     Dates: start: 2007
  7. FOSAMAC [Concomitant]
     Dosage: 35 MG, WEEKLY
     Route: 048
  8. FOLIAMIN [Concomitant]
     Dosage: 10 MG, WEEKLY
     Route: 048

REACTIONS (4)
  - Somnolence [Recovered/Resolved]
  - Visual impairment [Recovered/Resolved]
  - Pneumonia [Recovered/Resolved]
  - Drug interaction [Unknown]
